FAERS Safety Report 8447513 (Version 2)
Quarter: 2012Q4

REPORT INFORMATION
  Report Type: 
  Country: US (occurrence: US)
  Receive Date: 20120308
  Receipt Date: 20121018
  Transmission Date: 20130627
  Serious: Yes (Other)
  Sender: FDA-Public Use
  Company Number: US-ROCHE-783800

PATIENT
  Age: 19 Year
  Sex: Female
  Weight: 58.57 kg

DRUGS (5)
  1. ACCUTANE [Suspect]
     Indication: PRODUCT USED FOR UNKNOWN INDICATION
     Route: 065
     Dates: start: 19940423, end: 19950130
  2. ACCUTANE [Suspect]
     Route: 065
     Dates: start: 19960328, end: 19960711
  3. ACCUTANE [Suspect]
     Route: 065
     Dates: start: 19980804, end: 19981227
  4. ACCUTANE [Suspect]
     Route: 065
     Dates: start: 20000609, end: 20001007
  5. ORTHO TRI CYCLEN [Concomitant]

REACTIONS (6)
  - Inflammatory bowel disease [Unknown]
  - Colitis ulcerative [Unknown]
  - Emotional distress [Unknown]
  - Depression [Unknown]
  - Suicidal ideation [Unknown]
  - Dry skin [Unknown]
